FAERS Safety Report 20935875 (Version 1)
Quarter: 2022Q2

REPORT INFORMATION
  Report Type: Spontaneous
  Country: US (occurrence: None)
  Receive Date: 20220609
  Receipt Date: 20220609
  Transmission Date: 20220720
  Serious: No
  Sender: FDA-Public Use
  Company Number: US-ROCHE-2826732

PATIENT
  Age: 55 Year
  Sex: Female
  Weight: 68.100 kg

DRUGS (3)
  1. ACTEMRA [Suspect]
     Active Substance: TOCILIZUMAB
     Indication: Rheumatoid arthritis
     Dosage: 162 MG/0.9 ML ACTPEN, INJECTION
     Route: 058
  2. ACTEMRA [Suspect]
     Active Substance: TOCILIZUMAB
  3. PLAQUENIL [Concomitant]
     Active Substance: HYDROXYCHLOROQUINE SULFATE
     Indication: Rheumatoid arthritis
     Route: 048

REACTIONS (7)
  - Device dispensing error [Unknown]
  - Device defective [Unknown]
  - Product packaging quantity issue [Unknown]
  - Off label use [Unknown]
  - Injection site pain [Unknown]
  - Menopause [Unknown]
  - Sciatica [Unknown]

NARRATIVE: CASE EVENT DATE: 20210505
